FAERS Safety Report 16112420 (Version 1)
Quarter: 2019Q1

REPORT INFORMATION
  Report Type: Report from Study
  Country: US (occurrence: US)
  Receive Date: 20190325
  Receipt Date: 20190325
  Transmission Date: 20190418
  Serious: Yes (Other)
  Sender: FDA-Public Use
  Company Number: US-EXELIXIS-CABO-19019034

PATIENT
  Sex: Female

DRUGS (1)
  1. CABOMETYX [Suspect]
     Active Substance: CABOZANTINIB S-MALATE
     Indication: RENAL CANCER
     Dosage: 60 MG, QD
     Route: 048
     Dates: start: 20170120

REACTIONS (11)
  - Pain in jaw [Unknown]
  - Impaired healing [Unknown]
  - Dry skin [Unknown]
  - Diarrhoea [Unknown]
  - Blood triglycerides increased [Unknown]
  - Hypertension [Unknown]
  - Arthropathy [Unknown]
  - Ear pain [Unknown]
  - Dyspepsia [Unknown]
  - Urinary tract infection [Unknown]
  - Hypothyroidism [Unknown]
